FAERS Safety Report 9465534 (Version 2)
Quarter: 2013Q3

REPORT INFORMATION
  Report Type: Spontaneous
  Country: US (occurrence: US)
  Receive Date: 20130820
  Receipt Date: 20130906
  Transmission Date: 20140515
  Serious: No
  Sender: FDA-Public Use
  Company Number: US-TEVA-426771USA

PATIENT
  Age: 88 Year
  Sex: Female

DRUGS (2)
  1. NUVIGIL [Suspect]
     Dates: start: 20130802
  2. DIURETIC [Suspect]

REACTIONS (3)
  - Diarrhoea [Not Recovered/Not Resolved]
  - Fatigue [Not Recovered/Not Resolved]
  - Drug hypersensitivity [Not Recovered/Not Resolved]
